FAERS Safety Report 15692676 (Version 1)
Quarter: 2018Q4

REPORT INFORMATION
  Report Type: Spontaneous
  Country: US (occurrence: US)
  Receive Date: 20181206
  Receipt Date: 20181206
  Transmission Date: 20190205
  Serious: No
  Sender: FDA-Public Use
  Company Number: US-LEO PHARMA-315398

PATIENT
  Age: 19 Year
  Sex: Female

DRUGS (1)
  1. PROTOPIC [Suspect]
     Active Substance: TACROLIMUS
     Indication: ECZEMA
     Dosage: THIN LAYER, SINGLE
     Route: 061
     Dates: start: 20181121, end: 20181121

REACTIONS (4)
  - Application site inflammation [Recovered/Resolved]
  - Application site erythema [Recovered/Resolved]
  - Application site pruritus [Recovered/Resolved]
  - Application site rash [Recovered/Resolved]

NARRATIVE: CASE EVENT DATE: 20181121
